FAERS Safety Report 14849104 (Version 1)
Quarter: 2018Q2

REPORT INFORMATION
  Report Type: Spontaneous
  Country: US (occurrence: US)
  Receive Date: 20180504
  Receipt Date: 20180504
  Transmission Date: 20180711
  Serious: Yes (Other)
  Sender: FDA-Public Use
  Company Number: US-BAYER-2018-079697

PATIENT
  Age: 38 Year
  Sex: Female

DRUGS (1)
  1. GIANVI [Suspect]
     Active Substance: DROSPIRENONE\ETHINYL ESTRADIOL
     Dosage: UNK
     Route: 048

REACTIONS (4)
  - Hemianaesthesia [Unknown]
  - Cerebral thrombosis [Unknown]
  - Cerebrovascular accident [Unknown]
  - Amnesia [None]
